FAERS Safety Report 7294778-X (Version None)
Quarter: 2011Q1

REPORT INFORMATION
  Report Type: 
  Country: None (occurrence: None)
  Receive Date: 20110216
  Receipt Date: 20110210
  Transmission Date: 20110831
  Serious: Yes (Life-Threatening, Hospitalization, Disabling, Other)
  Sender: FDA-Public Use
  Company Number: FR-ASTELLAS-2011EU000336

PATIENT
  Sex: Male

DRUGS (4)
  1. PROTOPIC [Suspect]
     Indication: DERMATITIS ATOPIC
     Dosage: 0.03 %, UNKNOWN/D
     Route: 061
     Dates: start: 20090119, end: 20090225
  2. AERIUS [Concomitant]
     Dosage: UNK
     Route: 048
  3. PROTOPIC [Suspect]
     Dosage: 0.03 %, UNKNOWN/D
     Route: 061
     Dates: start: 20090225
  4. PROTOPIC [Suspect]
     Dosage: 0.03 %, UNKNOWN/D
     Route: 061
     Dates: start: 20100203

REACTIONS (2)
  - NEPHROBLASTOMA [None]
  - DRUG PRESCRIBING ERROR [None]
